FAERS Safety Report 8397869-5 (Version None)
Quarter: 2012Q2

REPORT INFORMATION
  Report Type: 
  Country: None (occurrence: None)
  Receive Date: 20120531
  Receipt Date: 20120525
  Transmission Date: 20120825
  Serious: Yes (Death, Hospitalization)
  Sender: FDA-Public Use
  Company Number: PHHY2012BR045557

PATIENT
  Sex: Female

DRUGS (1)
  1. EXELON [Suspect]
     Indication: DEMENTIA ALZHEIMER'S TYPE
     Dosage: 4.6 MG, DAILY
     Route: 062

REACTIONS (5)
  - PLEURAL EFFUSION [None]
  - SEDATION [None]
  - RENAL IMPAIRMENT [None]
  - FEEDING DISORDER [None]
  - MULTI-ORGAN FAILURE [None]
